FAERS Safety Report 20796974 (Version 1)
Quarter: 2022Q2

REPORT INFORMATION
  Report Type: Spontaneous
  Country: US (occurrence: None)
  Receive Date: 20220506
  Receipt Date: 20220506
  Transmission Date: 20220720
  Serious: No
  Sender: FDA-Public Use
  Company Number: None

PATIENT
  Age: 23 Year
  Sex: Male

DRUGS (1)
  1. BUPROPION [Suspect]
     Active Substance: BUPROPION
     Indication: Depression
     Dosage: FREQUENCY : DAILY;?
     Route: 048
     Dates: start: 20220401, end: 20220430

REACTIONS (2)
  - Abdominal discomfort [None]
  - Abdominal discomfort [None]

NARRATIVE: CASE EVENT DATE: 20220429
